FAERS Safety Report 24289975 (Version 1)
Quarter: 2024Q3

REPORT INFORMATION
  Report Type: Spontaneous
  Country: IT (occurrence: IT)
  Receive Date: 20240906
  Receipt Date: 20240906
  Transmission Date: 20241017
  Serious: Yes (Hospitalization, Other)
  Sender: ASTELLAS
  Company Number: IT-CHEPLA-2024010315

PATIENT
  Age: 39 Year
  Sex: Male

DRUGS (23)
  1. AMPHOTERICIN B [Suspect]
     Active Substance: AMPHOTERICIN B
     Indication: Product used for unknown indication
     Dosage: 3 MG/KG
     Route: 065
  2. NIVOLUMAB [Suspect]
     Active Substance: NIVOLUMAB
     Indication: Intestinal metastasis
     Route: 065
  3. NIVOLUMAB [Suspect]
     Active Substance: NIVOLUMAB
     Indication: Metastases to lymph nodes
     Dosage: MAINTANANCE THERAPY, 480MG EVERY 4 WEEKS
     Route: 065
     Dates: start: 202210
  4. NIVOLUMAB [Suspect]
     Active Substance: NIVOLUMAB
     Indication: Malignant melanoma stage III
  5. VALGANCICLOVIR [Suspect]
     Active Substance: VALGANCICLOVIR
     Indication: Cytomegalovirus infection
     Route: 048
  6. METHYLPREDNISOLONE [Suspect]
     Active Substance: METHYLPREDNISOLONE
     Indication: Porcelain gallbladder
     Dosage: 1 MG/KG
     Route: 065
     Dates: start: 2023
  7. METHYLPREDNISOLONE [Suspect]
     Active Substance: METHYLPREDNISOLONE
     Dosage: 1 MG/KG
     Route: 065
  8. METHYLPREDNISOLONE [Suspect]
     Active Substance: METHYLPREDNISOLONE
     Dosage: 1 MG/KG
     Route: 042
     Dates: start: 2022
  9. TRAMETINIB [Suspect]
     Active Substance: TRAMETINIB
     Indication: Product used for unknown indication
     Route: 065
  10. ENOXAPARIN [Suspect]
     Active Substance: ENOXAPARIN
     Indication: Product used for unknown indication
     Route: 065
  11. CEFTAZIDIME [Suspect]
     Active Substance: CEFTAZIDIME
     Indication: Product used for unknown indication
     Route: 065
  12. CEFTAZIDIME [Suspect]
     Active Substance: CEFTAZIDIME
     Dosage: 2G QD
     Route: 065
  13. DABRAFENIB [Suspect]
     Active Substance: DABRAFENIB
     Indication: Product used for unknown indication
     Route: 065
  14. ACYCLOVIR [Suspect]
     Active Substance: ACYCLOVIR
     Indication: Product used for unknown indication
     Dosage: 750MG TID
     Route: 065
  15. SULFAMETHOXAZOLE\TRIMETHOPRIM [Suspect]
     Active Substance: SULFAMETHOXAZOLE\TRIMETHOPRIM
     Indication: Product used for unknown indication
     Route: 065
  16. CANRENONE [Suspect]
     Active Substance: CANRENONE
     Indication: Product used for unknown indication
     Dosage: 100MG BID
     Route: 065
  17. URSODIOL [Suspect]
     Active Substance: URSODIOL
     Indication: Product used for unknown indication
     Dosage: 300MG TID
     Route: 065
  18. MYCOPHENOLATE MOFETIL [Suspect]
     Active Substance: MYCOPHENOLATE MOFETIL
     Indication: Product used for unknown indication
     Dosage: 500 MG BID
     Route: 065
  19. PREDNISONE [Concomitant]
     Active Substance: PREDNISONE
     Indication: Product used for unknown indication
     Dosage: 1 MG/KG
     Route: 048
  20. EDOXABAN [Concomitant]
     Active Substance: EDOXABAN
     Indication: Superficial vein thrombosis
     Route: 065
  21. FUROSEMIDE [Concomitant]
     Active Substance: FUROSEMIDE
     Indication: Product used for unknown indication
     Route: 065
     Dates: start: 2022
  22. FUROSEMIDE [Concomitant]
     Active Substance: FUROSEMIDE
     Route: 065
     Dates: start: 2023
  23. LEVOTHYROXINE [Concomitant]
     Active Substance: LEVOTHYROXINE\LEVOTHYROXINE SODIUM
     Indication: Hypothyroidism
     Route: 065

REACTIONS (9)
  - Hypotension [Unknown]
  - Anaemia [Unknown]
  - Varicella virus test positive [Unknown]
  - Urinary retention [Unknown]
  - Hypoacusis [Unknown]
  - Diplopia [Unknown]
  - Disease recurrence [Unknown]
  - Nervous system disorder [Unknown]
  - Pseudomonas test positive [Unknown]
